FAERS Safety Report 14571505 (Version 1)
Quarter: 2018Q1

REPORT INFORMATION
  Report Type: Spontaneous
  Country: US (occurrence: US)
  Receive Date: 20180226
  Receipt Date: 20180226
  Transmission Date: 20180509
  Serious: No
  Sender: FDA-Public Use
  Company Number: US-TAKEDA-2018TUS004252

PATIENT
  Age: 70 Year
  Sex: Female

DRUGS (1)
  1. ALUNBRIG [Suspect]
     Active Substance: BRIGATINIB
     Indication: PLASMA CELL MYELOMA
     Dosage: 90 MG, UNK
     Route: 048

REACTIONS (4)
  - Chills [Unknown]
  - Off label use [Unknown]
  - Pyrexia [Unknown]
  - Cough [Unknown]
